FAERS Safety Report 17007187 (Version 3)
Quarter: 2020Q1

REPORT INFORMATION
  Report Type: Spontaneous
  Country: ES (occurrence: ES)
  Receive Date: 20191107
  Receipt Date: 20200128
  Transmission Date: 20200409
  Serious: Yes (Other)
  Sender: FDA-Public Use
  Company Number: ES-SUN PHARMACEUTICAL INDUSTRIES LTD-2019RR-226662

PATIENT
  Age: 56 Year
  Sex: Female

DRUGS (6)
  1. OMEPRAZOL (2141A) [Concomitant]
     Active Substance: OMEPRAZOLE
     Indication: PRODUCT USED FOR UNKNOWN INDICATION
     Route: 065
  2. CLARITHROMYCIN. [Suspect]
     Active Substance: CLARITHROMYCIN
     Indication: BRONCHITIS
     Dosage: 500 MILLIGRAM, 1DOSE/12HOUR
     Route: 048
     Dates: start: 20191001, end: 20191002
  3. RAMIPRIL/HIDROCLOROTIAZIDA 2,5 MG/12,5 MG COMPRIMIDO [Concomitant]
     Indication: PRODUCT USED FOR UNKNOWN INDICATION
     Route: 065
  4. TERBASMIN TURBUHALER 500 MICROGRAMOS/INHALACION POLVO PARA INHALACI... [Concomitant]
     Indication: PRODUCT USED FOR UNKNOWN INDICATION
     Route: 065
  5. ACFOL 5 MG COMPRIMIDOS [Concomitant]
     Indication: PRODUCT USED FOR UNKNOWN INDICATION
     Route: 065
  6. METOTREXATO 2,5 MG COMPRIMIDO [Concomitant]
     Indication: PRODUCT USED FOR UNKNOWN INDICATION
     Route: 065

REACTIONS (3)
  - Headache [Unknown]
  - Conjunctival haemorrhage [Unknown]
  - Muscle spasms [Unknown]

NARRATIVE: CASE EVENT DATE: 20191002
